FAERS Safety Report 25640500 (Version 1)
Quarter: 2025Q3

REPORT INFORMATION
  Report Type: Spontaneous
  Country: GB (occurrence: GB)
  Receive Date: 20250804
  Receipt Date: 20250804
  Transmission Date: 20251021
  Serious: Yes (Other)
  Sender: CIPLA
  Company Number: GB-MHRA-MED-202507231128413750-JYFTP

PATIENT

DRUGS (6)
  1. FINASTERIDE [Suspect]
     Active Substance: FINASTERIDE
     Indication: Adverse drug reaction
     Dosage: 5 MILLIGRAM, QD
     Route: 065
     Dates: start: 20250709, end: 20250720
  2. TAMSULOSIN [Concomitant]
     Active Substance: TAMSULOSIN
     Indication: Adverse drug reaction
     Route: 065
     Dates: start: 2010
  3. TAMSULOSIN [Concomitant]
     Active Substance: TAMSULOSIN
     Indication: Dysuria
  4. LISINOPRIL [Concomitant]
     Active Substance: LISINOPRIL
     Indication: Hypertension
     Route: 065
     Dates: start: 2017
  5. DESLORATADINE [Concomitant]
     Active Substance: DESLORATADINE
     Indication: Adverse drug reaction
     Route: 065
     Dates: start: 2000
  6. DESLORATADINE [Concomitant]
     Active Substance: DESLORATADINE
     Indication: Seasonal allergy

REACTIONS (2)
  - Constipation [Not Recovered/Not Resolved]
  - Medication error [Unknown]

NARRATIVE: CASE EVENT DATE: 20250718
